FAERS Safety Report 12541551 (Version 1)
Quarter: 2016Q3

REPORT INFORMATION
  Report Type: Spontaneous
  Country: GB (occurrence: GB)
  Receive Date: 20160708
  Receipt Date: 20160708
  Transmission Date: 20161109
  Serious: Yes (Other)
  Sender: FDA-Public Use
  Company Number: GB-TEVA-673543ACC

PATIENT
  Age: 28 Year
  Sex: Female

DRUGS (6)
  1. PAROXETINE. [Suspect]
     Active Substance: PAROXETINE
     Indication: DEPRESSION
  2. ZISPIN [Concomitant]
     Active Substance: MIRTAZAPINE
     Indication: PRODUCT USED FOR UNKNOWN INDICATION
     Dosage: UNK
     Route: 065
     Dates: start: 19990201
  3. SEROXAT [Suspect]
     Active Substance: PAROXETINE HYDROCHLORIDE
     Indication: PRODUCT USED FOR UNKNOWN INDICATION
     Dosage: 20 MILLIGRAM DAILY; 20 MG, QD
     Route: 065
     Dates: start: 19970307
  4. PAROXETINE. [Suspect]
     Active Substance: PAROXETINE
     Indication: ANXIETY
     Dosage: UNK UNK, U
     Route: 065
     Dates: start: 20010227, end: 20040803
  5. SEROXAT [Suspect]
     Active Substance: PAROXETINE HYDROCHLORIDE
     Dosage: 30 MG, QD
     Route: 065
  6. DIAZEPAM. [Concomitant]
     Active Substance: DIAZEPAM
     Indication: PRODUCT USED FOR UNKNOWN INDICATION
     Dosage: UNK
     Route: 065
     Dates: start: 20040714

REACTIONS (35)
  - Hyperhidrosis [Unknown]
  - Insomnia [Unknown]
  - Nightmare [Unknown]
  - Tearfulness [Unknown]
  - Sleep disorder [Unknown]
  - Social anxiety disorder [Unknown]
  - Malaise [Unknown]
  - Depression [Unknown]
  - Chills [Unknown]
  - Helplessness [Unknown]
  - Restlessness [Unknown]
  - Memory impairment [Unknown]
  - Disturbance in attention [Unknown]
  - Anhedonia [Unknown]
  - Decreased appetite [Unknown]
  - Influenza [Unknown]
  - Emotional distress [Unknown]
  - Palpitations [Unknown]
  - Legal problem [Unknown]
  - Malaise [Unknown]
  - Anxiety [Unknown]
  - Dizziness [Unknown]
  - Depressed mood [Unknown]
  - Fear [Unknown]
  - Suicidal ideation [Unknown]
  - Panic attack [Unknown]
  - Agitation [Unknown]
  - Vertigo [Unknown]
  - Withdrawal syndrome [Unknown]
  - Diarrhoea [Unknown]
  - Vomiting [Unknown]
  - Weight decreased [Unknown]
  - Tremor [Unknown]
  - Chest discomfort [Unknown]
  - Agoraphobia [Unknown]

NARRATIVE: CASE EVENT DATE: 2004
